FAERS Safety Report 6937443-8 (Version None)
Quarter: 2010Q3

REPORT INFORMATION
  Report Type: 
  Country: None (occurrence: None)
  Receive Date: 20100823
  Receipt Date: 20100812
  Transmission Date: 20110219
  Serious: Yes (Hospitalization, Other)
  Sender: FDA-Public Use
  Company Number: JP-ROCHE-698096

PATIENT
  Sex: Female

DRUGS (9)
  1. TOCILIZUMAB [Suspect]
     Indication: RHEUMATOID ARTHRITIS
     Route: 042
     Dates: start: 20090109, end: 20090109
  2. TOCILIZUMAB [Suspect]
     Route: 042
     Dates: start: 20090213, end: 20090213
  3. TOCILIZUMAB [Suspect]
     Route: 042
     Dates: start: 20090313, end: 20090313
  4. TOCILIZUMAB [Suspect]
     Route: 042
     Dates: start: 20090530, end: 20090530
  5. TOCILIZUMAB [Suspect]
     Route: 042
     Dates: start: 20090626
  6. PREDONINE [Concomitant]
     Route: 048
  7. CELECOXIB [Concomitant]
     Dosage: DRUG NAME: CELECOX(CELECOXIB)
     Route: 048
  8. MUCOSTA [Concomitant]
     Dosage: DOSE FORM: PERORAL AGENT
     Route: 050
  9. ZYLORIC [Concomitant]
     Route: 048
     Dates: end: 20090312

REACTIONS (3)
  - BILE DUCT STONE [None]
  - CHOLELITHIASIS [None]
  - WHITE BLOOD CELL COUNT DECREASED [None]
